FAERS Safety Report 14803910 (Version 1)
Quarter: 2018Q2

REPORT INFORMATION
  Report Type: Spontaneous
  Country: FR (occurrence: FR)
  Receive Date: 20180425
  Receipt Date: 20180425
  Transmission Date: 20180711
  Serious: Yes (Hospitalization)
  Sender: FDA-Public Use
  Company Number: FR-ROCHE-1990758

PATIENT
  Age: 65 Year
  Sex: Male
  Weight: 87 kg

DRUGS (11)
  1. CEFTRIAXONE MYLAN [Concomitant]
     Active Substance: CEFTRIAXONE
     Indication: PROTEUS INFECTION
     Route: 042
     Dates: start: 20170810, end: 20170818
  2. METHYLPREDNISOLONE MYLAN [Concomitant]
     Active Substance: METHYLPREDNISOLONE
     Indication: PRODUCT USED FOR UNKNOWN INDICATION
     Route: 065
  3. LEPTICUR [Concomitant]
     Active Substance: TROPATEPINE HYDROCHLORIDE
  4. LEVETIRACETAM MYLAN [Concomitant]
     Active Substance: LEVETIRACETAM
     Indication: EPILEPSY
     Route: 065
  5. AVASTIN [Suspect]
     Active Substance: BEVACIZUMAB
     Indication: GLIOBLASTOMA
     Dosage: SUBSEQUENT DOSE: 31/JUL/2017  (SECOND CYCLE)
     Route: 042
     Dates: start: 20170717
  6. AMOXICILLIN. [Concomitant]
     Active Substance: AMOXICILLIN
  7. ZARZIO [Concomitant]
     Active Substance: FILGRASTIM
  8. LOVENOX [Concomitant]
     Active Substance: ENOXAPARIN SODIUM
     Indication: THROMBOSIS PROPHYLAXIS
     Route: 065
  9. INNOHEP [Concomitant]
     Active Substance: TINZAPARIN SODIUM
     Indication: PULMONARY EMBOLISM
     Route: 058
     Dates: start: 20170809, end: 20170813
  10. PREVISCAN (FRANCE) [Concomitant]
     Active Substance: FLUINDIONE
  11. MUPHORAN [Suspect]
     Active Substance: FOTEMUSTINE
     Indication: GLIOBLASTOMA
     Dosage: SUBSEQUENT DOSE: 31/JUL/2017 (SECOND CYCLE)
     Route: 042
     Dates: start: 20170717

REACTIONS (5)
  - Lymphopenia [Not Recovered/Not Resolved]
  - Anaemia [Not Recovered/Not Resolved]
  - Intentional product use issue [Unknown]
  - Off label use [Unknown]
  - Thrombocytopenia [Not Recovered/Not Resolved]

NARRATIVE: CASE EVENT DATE: 20170801
